FAERS Safety Report 5081134-8 (Version None)
Quarter: 2006Q3

REPORT INFORMATION
  Report Type: 
  Country: None (occurrence: None)
  Receive Date: 20060816
  Receipt Date: 20060711
  Transmission Date: 20061208
  Serious: Yes (Other)
  Sender: FDA-Public Use
  Company Number: 2006UW14275

PATIENT
  Age: 7 Year
  Sex: Male

DRUGS (4)
  1. SYMBICORT TURBUHALER [Suspect]
     Dosage: 400 TO 800
     Route: 055
     Dates: start: 20050901
  2. RHINOCORT [Suspect]
     Route: 045
     Dates: start: 20050901
  3. DIMETAPP [Concomitant]
     Route: 048
  4. CLARITIN [Concomitant]
     Route: 048

REACTIONS (3)
  - COUGH [None]
  - DYSPHONIA [None]
  - NODULE [None]
